FAERS Safety Report 10750736 (Version 1)
Quarter: 2015Q1

REPORT INFORMATION
  Report Type: Spontaneous
  Country: US (occurrence: None)
  Receive Date: 20150128
  Receipt Date: 20150128
  Transmission Date: 20150721
  Serious: Yes (Hospitalization, Other)
  Sender: FDA-Public Use
  Company Number: 2015JUB00014

PATIENT
  Age: 24 Year
  Sex: Female

DRUGS (1)
  1. VALACYCLOVIR (VALACYCLOVIR) [Suspect]
     Active Substance: VALACYCLOVIR HYDROCHLORIDE
     Indication: GENITAL HERPES

REACTIONS (12)
  - Status epilepticus [None]
  - Feeling abnormal [None]
  - Renal failure [None]
  - Neurotoxicity [None]
  - Clumsiness [None]
  - Generalised tonic-clonic seizure [None]
  - Hallucination [None]
  - Posterior reversible encephalopathy syndrome [None]
  - Tremor [None]
  - Accidental overdose [None]
  - Blood pressure increased [None]
  - Drug resistance [None]
